FAERS Safety Report 8600987-7 (Version None)
Quarter: 2012Q3

REPORT INFORMATION
  Report Type: 
  Country: None (occurrence: None)
  Receive Date: 20120817
  Receipt Date: 20120810
  Transmission Date: 20120928
  Serious: Yes (Hospitalization)
  Sender: FDA-Public Use
  Company Number: FR-GENZYME-MOZO-1000710

PATIENT
  Sex: Male
  Weight: 80 kg

DRUGS (7)
  1. MOZOBIL [Suspect]
     Indication: ACUTE MYELOID LEUKAEMIA
     Dosage: 240 MCG/KG, QD, DAYS 1-3
     Route: 042
     Dates: start: 20120419, end: 20120421
  2. MOZOBIL [Suspect]
     Dosage: 240 MCG/KG, QD, DAYS 8-10
     Route: 042
     Dates: start: 20120426, end: 20120428
  3. CYTARABINE [Suspect]
     Dosage: 2050 MG, QD, DAYS 8-10
     Route: 042
     Dates: start: 20120426, end: 20120428
  4. GRANOCYTE [Suspect]
     Indication: ACUTE MYELOID LEUKAEMIA
     Dosage: 410 MCG, QD, DAYS 1-10
     Route: 042
     Dates: start: 20120419, end: 20120428
  5. CYTARABINE [Suspect]
     Indication: ACUTE MYELOID LEUKAEMIA
     Dosage: 1050 MG, QD, DAYS 1-3
     Route: 042
     Dates: start: 20120419, end: 20120421
  6. MOZOBIL [Suspect]
  7. DAUNORUBICIN HCL [Suspect]
     Indication: ACUTE MYELOID LEUKAEMIA
     Dosage: 125 MG, QD, DAYS 1-3
     Route: 042
     Dates: start: 20120419, end: 20120421

REACTIONS (1)
  - PANCYTOPENIA [None]
